FAERS Safety Report 6558561-2 (Version None)
Quarter: 2010Q1

REPORT INFORMATION
  Report Type: 
  Country: None (occurrence: None)
  Receive Date: 20100129
  Receipt Date: 20090330
  Transmission Date: 20100710
  Serious: No
  Sender: FDA-Public Use
  Company Number: A0769780A

PATIENT
  Age: 55 Year
  Sex: Female

DRUGS (3)
  1. MEPRON [Suspect]
     Indication: LYME DISEASE
     Dosage: 1TSP SINGLE DOSE
     Route: 048
     Dates: start: 20090101, end: 20090101
  2. SLEEPING PILL [Suspect]
  3. OMNICEF [Concomitant]

REACTIONS (7)
  - ABDOMINAL DISCOMFORT [None]
  - DIZZINESS [None]
  - DRUG INEFFECTIVE [None]
  - DYSPNOEA [None]
  - INSOMNIA [None]
  - PALPITATIONS [None]
  - TERMINAL INSOMNIA [None]
